FAERS Safety Report 7572406-3 (Version None)
Quarter: 2011Q2

REPORT INFORMATION
  Report Type: 
  Country: None (occurrence: None)
  Receive Date: 20110624
  Receipt Date: 20110621
  Transmission Date: 20111010
  Serious: Yes (Life-Threatening, Hospitalization)
  Sender: FDA-Public Use
  Company Number: PHHY2011US55032

PATIENT
  Sex: Male
  Weight: 10 kg

DRUGS (1)
  1. EXJADE [Suspect]
     Indication: THALASSAEMIA
     Dosage: 125 MG, DAILY
     Route: 048
     Dates: start: 20100101

REACTIONS (3)
  - CEREBROVASCULAR ACCIDENT [None]
  - TERMINAL STATE [None]
  - SEPSIS [None]
